FAERS Safety Report 16110247 (Version 1)
Quarter: 2019Q1

REPORT INFORMATION
  Report Type: Spontaneous
  Country: US (occurrence: US)
  Receive Date: 20190325
  Receipt Date: 20190325
  Transmission Date: 20190418
  Serious: No
  Sender: FDA-Public Use
  Company Number: US-ASTRAZENECA-2019SE33117

PATIENT
  Age: 928 Month
  Sex: Male
  Weight: 104.3 kg

DRUGS (4)
  1. VENTOLIN [Concomitant]
     Active Substance: ALBUTEROL SULFATE
     Dosage: AS REQUIRED
  2. MUCINEX [Concomitant]
     Active Substance: GUAIFENESIN
  3. SYMBICORT [Suspect]
     Active Substance: BUDESONIDE\FORMOTEROL FUMARATE DIHYDRATE
     Indication: DYSPNOEA
     Route: 055
     Dates: start: 201812
  4. VICKS DAYQUIL [Concomitant]
     Active Substance: DEXTROMETHORPHAN HYDROBROMIDE\GUAIFENESIN

REACTIONS (13)
  - Product use in unapproved indication [Unknown]
  - Drug ineffective [Unknown]
  - Dyspnoea [Unknown]
  - Insomnia [Unknown]
  - Sneezing [Unknown]
  - Respiratory tract congestion [Unknown]
  - Off label use [Unknown]
  - Upper-airway cough syndrome [Unknown]
  - Haemoptysis [Unknown]
  - Sinus pain [Unknown]
  - Productive cough [Unknown]
  - Cough [Unknown]
  - Bronchitis [Unknown]

NARRATIVE: CASE EVENT DATE: 201812
